FAERS Safety Report 21866118 (Version 1)
Quarter: 2023Q1

REPORT INFORMATION
  Report Type: Report from Study
  Country: IN (occurrence: IN)
  Receive Date: 20230116
  Receipt Date: 20230116
  Transmission Date: 20230417
  Serious: Yes (Other)
  Sender: FDA-Public Use
  Company Number: IN-002147023-NVSC2022IN152510

PATIENT
  Age: 61 Year
  Sex: Female

DRUGS (2)
  1. RIBOCICLIB [Suspect]
     Active Substance: RIBOCICLIB
     Indication: Breast cancer metastatic
     Dosage: 600 MG, QD (600 MG OD FOR 21 DAYS AND 7 DAYS OFF)
     Route: 065
     Dates: start: 20191217
  2. RIBOCICLIB [Suspect]
     Active Substance: RIBOCICLIB
     Dosage: 400 MG, OTHER (400 MG OD 21 DAYS ON 7 DAYS OFF)
     Route: 065
     Dates: start: 20230111

REACTIONS (5)
  - Metastases to bone [Unknown]
  - Metastases to lymph nodes [Unknown]
  - Breast mass [Unknown]
  - Pleural thickening [Unknown]
  - Effusion [Unknown]

NARRATIVE: CASE EVENT DATE: 20220617
